FAERS Safety Report 6441236-8 (Version None)
Quarter: 2009Q4

REPORT INFORMATION
  Report Type: 
  Country: None (occurrence: None)
  Receive Date: 20091113
  Receipt Date: 20091113
  Transmission Date: 20100525
  Serious: Yes (Other)
  Sender: FDA-Public Use
  Company Number: None

PATIENT
  Age: 26 Year
  Sex: Male
  Weight: 90.7194 kg

DRUGS (2)
  1. EQUATE MINOXIDIL TOPICAL 5% ACTAVIS MID ATLANTIC LLC [Suspect]
     Indication: ANDROGENETIC ALOPECIA
     Dosage: .5 ML ON SCALP ONCE A DAY TOP
     Route: 061
     Dates: start: 20080314, end: 20090103
  2. TQUATE MINOXIDIL TOPICAL 2% ACTAVIS MID ATLANTIC LLC [Suspect]
     Indication: ANDROGENETIC ALOPECIA
     Dosage: .5 ML ON SCALP ONCE A DAY TOP
     Route: 061
     Dates: start: 20090104, end: 20091113

REACTIONS (7)
  - GRANULOMA SKIN [None]
  - HAIR GROWTH ABNORMAL [None]
  - JOINT STIFFNESS [None]
  - OEDEMA PERIPHERAL [None]
  - SKIN IRRITATION [None]
  - SKIN WRINKLING [None]
  - TREMOR [None]
